FAERS Safety Report 6121509-9 (Version None)
Quarter: 2009Q1

REPORT INFORMATION
  Report Type: 
  Country: None (occurrence: None)
  Receive Date: 20090313
  Receipt Date: 20090227
  Transmission Date: 20090719
  Serious: Yes (Hospitalization)
  Sender: FDA-Public Use
  Company Number: 1000005120

PATIENT
  Age: 74 Year
  Sex: Female
  Weight: 52 kg

DRUGS (10)
  1. CITALOPRAM HYDROBROMIDE [Suspect]
     Dosage: 20 MG (20 MG, 1 IN 1 D) ORAL
     Route: 048
     Dates: start: 20081006, end: 20081013
  2. KINZALKOMB [Suspect]
     Dosage: 12.5/40 MG (1 IN 1 D) ORAL
     Route: 048
     Dates: end: 20081013
  3. JANUVA [Concomitant]
  4. ASPIRIN [Concomitant]
  5. BISOPROLOL FUMARATE [Concomitant]
  6. OVESTIN [Concomitant]
  7. XIMOVAN [Concomitant]
  8. ADARTREL [Concomitant]
  9. MADOPAR [Concomitant]
  10. PANTOPRAZOL [Concomitant]

REACTIONS (19)
  - ALANINE AMINOTRANSFERASE INCREASED [None]
  - ASPARTATE AMINOTRANSFERASE INCREASED [None]
  - BLOOD CREATINE PHOSPHOKINASE INCREASED [None]
  - BLOOD CREATININE INCREASED [None]
  - BLOOD PRESSURE INCREASED [None]
  - DECREASED ACTIVITY [None]
  - DIVERTICULITIS [None]
  - ELECTROCARDIOGRAM POOR R-WAVE PROGRESSION [None]
  - ELECTROCARDIOGRAM QT PROLONGED [None]
  - HYPERTENSIVE CRISIS [None]
  - HYPOKALAEMIA [None]
  - HYPONATRAEMIA [None]
  - NAUSEA [None]
  - RED BLOOD CELL COUNT DECREASED [None]
  - RENAL CYST [None]
  - RESTLESS LEGS SYNDROME [None]
  - RESTLESSNESS [None]
  - SOMNOLENCE [None]
  - VOMITING [None]
